FAERS Safety Report 10098574 (Version 2)
Quarter: 2014Q2

REPORT INFORMATION
  Report Type: Report from Study
  Country: JP (occurrence: JP)
  Receive Date: 20140423
  Receipt Date: 20140423
  Transmission Date: 20141212
  Serious: Yes (Hospitalization, Other)
  Sender: FDA-Public Use
  Company Number: JP-SA-THYM-1003223

PATIENT
  Age: 68 Year
  Sex: Female
  Weight: 49 kg

DRUGS (24)
  1. THYMOGLOBULIN [Suspect]
     Indication: APLASTIC ANAEMIA
     Dosage: 187.5 MG, QD
     Route: 042
     Dates: start: 20100824, end: 20100825
  2. THYMOGLOBULIN [Suspect]
     Indication: APLASTIC ANAEMIA
     Dosage: 187.5 MG, QD
     Route: 042
     Dates: start: 20100825, end: 20100828
  3. CICLOSPORIN [Concomitant]
     Indication: APLASTIC ANAEMIA
     Dosage: UNK
     Dates: start: 20100819, end: 20101025
  4. PREDNISOLONE [Concomitant]
     Indication: APLASTIC ANAEMIA
     Dosage: UNK
     Dates: start: 20100812
  5. PREDNISOLONE [Concomitant]
     Indication: APLASTIC ANAEMIA
     Dosage: UNK
     Dates: start: 20100812
  6. METHYLPREDNISOLONE SODIUM SUCCINATE [Concomitant]
     Indication: PREMEDICATION
     Dosage: UNK
     Dates: start: 20100823, end: 20100830
  7. METENOLONE ACETATE [Concomitant]
     Indication: APLASTIC ANAEMIA
     Dosage: UNK
     Dates: start: 20100819, end: 20101025
  8. GRANULOCYTE COLONY-STIMULATING FACTOR NOS [Concomitant]
     Dosage: UNK
     Dates: start: 20100818, end: 20100923
  9. CARBAZOCHROME SODIUM SULFONATE [Concomitant]
     Indication: APLASTIC ANAEMIA
     Dosage: UNK
     Dates: start: 20100812, end: 20100818
  10. TRANEXAMIC ACID [Concomitant]
     Indication: APLASTIC ANAEMIA
     Dosage: UNK
     Dates: start: 20100812, end: 20100818
  11. FILGRASTIM [Concomitant]
     Indication: APLASTIC ANAEMIA
     Dosage: UNK
     Dates: start: 20100818, end: 20100923
  12. FLUCONAZOLE [Concomitant]
     Indication: ANTIFUNGAL PROPHYLAXIS
     Dosage: UNK
     Dates: start: 20100818, end: 20100913
  13. ARBEKACIN SULFATE [Concomitant]
     Indication: STAPHYLOCOCCAL INFECTION
     Dosage: UNK
     Dates: start: 20101002, end: 20101016
  14. ALL OTHER THERAPEUTIC PRODUCTS [Concomitant]
     Indication: HEPATIC FUNCTION ABNORMAL
     Dosage: UNK
     Dates: start: 20101006, end: 20101118
  15. FAMOTIDINE [Concomitant]
     Indication: GASTRIC ULCER
     Dosage: UNK
     Dates: start: 20100812, end: 20100924
  16. FAMOTIDINE [Concomitant]
     Indication: GASTRIC ULCER
     Dosage: UNK
     Dates: start: 20101021
  17. SULFAMETHOPRIM [Concomitant]
     Indication: ANTIFUNGAL PROPHYLAXIS
     Dosage: UNK
     Dates: start: 20100819, end: 20100929
  18. ALL OTHER THERAPEUTIC PRODUCTS [Concomitant]
     Dosage: UNK
     Route: 065
     Dates: start: 20100820, end: 20100924
  19. AMLODIPINE BESILATE [Concomitant]
     Indication: HYPERTENSION
     Dosage: UNK
     Dates: start: 20100910, end: 20100925
  20. AMLODIPINE BESILATE [Concomitant]
     Indication: HYPERTENSION
     Dosage: UNK
     Dates: start: 20100926
  21. LEVOFLOXACIN [Concomitant]
     Indication: TUBERCULOSIS
     Dosage: UNK
     Dates: start: 20100819, end: 20100924
  22. LEVOFLOXACIN [Concomitant]
     Indication: TUBERCULOSIS
     Dosage: UNK
     Dates: start: 20101122
  23. RED BLOOD CELLS, CONCENTRATED [Concomitant]
     Indication: APLASTIC ANAEMIA
     Dosage: UNK
     Dates: start: 20100813, end: 20101025
  24. PLATELETS, HUMAN BLOOD [Concomitant]
     Indication: APLASTIC ANAEMIA
     Dosage: UNK
     Dates: start: 20100812, end: 20101024

REACTIONS (7)
  - Dehydration [Recovered/Resolved]
  - Bronchopulmonary aspergillosis [Recovered/Resolved]
  - Pneumonia [Recovered/Resolved]
  - Staphylococcal infection [Recovered/Resolved]
  - Cerebral infarction [Recovered/Resolved]
  - Swelling [Unknown]
  - Hepatic function abnormal [Recovered/Resolved]
